FAERS Safety Report 9537608 (Version 1)
Quarter: 2013Q3

REPORT INFORMATION
  Report Type: Spontaneous
  Country: US (occurrence: US)
  Receive Date: 20130919
  Receipt Date: 20130919
  Transmission Date: 20140515
  Serious: Yes (Hospitalization)
  Sender: FDA-Public Use
  Company Number: US-BAYER-2013-113036

PATIENT
  Age: 19 Year
  Sex: Female

DRUGS (11)
  1. YAZ [Suspect]
  2. YASMIN [Suspect]
  3. OCELLA [Suspect]
  4. SOTRET [Concomitant]
     Dosage: UNK
     Dates: start: 20090513
  5. SOTRET [Concomitant]
     Dosage: UNK
     Dates: start: 20090815
  6. CLARAVIS [Concomitant]
     Dosage: UNK
     Dates: start: 20090717
  7. CLARAVIS [Concomitant]
     Dosage: UNK
     Dates: start: 20090916
  8. ACCUTANE [Concomitant]
     Indication: ACNE
  9. DILAUDID [Concomitant]
     Indication: PAIN
  10. ALBUTEROL [Concomitant]
     Indication: ASTHMA
  11. NORCO [Concomitant]

REACTIONS (1)
  - Pulmonary embolism [Recovered/Resolved]
